FAERS Safety Report 7651339-8 (Version None)
Quarter: 2011Q3

REPORT INFORMATION
  Report Type: 
  Country: None (occurrence: None)
  Receive Date: 20110802
  Receipt Date: 20110721
  Transmission Date: 20111222
  Serious: Yes (Hospitalization)
  Sender: FDA-Public Use
  Company Number: PHHY2011AR42816

PATIENT
  Sex: Female

DRUGS (1)
  1. EXFORGE [Suspect]
     Indication: HYPERTENSION
     Dosage: 1 DF (80 MG OF VALS AND 5 MG OF AMLO) PER DAY
     Dates: start: 20090520

REACTIONS (2)
  - WRIST FRACTURE [None]
  - FALL [None]
